FAERS Safety Report 20550759 (Version 1)
Quarter: 2022Q1

REPORT INFORMATION
  Report Type: Spontaneous
  Country: FR (occurrence: FR)
  Receive Date: 20220304
  Receipt Date: 20220304
  Transmission Date: 20220424
  Serious: Yes (Life-Threatening, Hospitalization)
  Sender: FDA-Public Use
  Company Number: None

PATIENT
  Age: 74 Year
  Sex: Female

DRUGS (7)
  1. CLOZAPINE [Suspect]
     Active Substance: CLOZAPINE
     Indication: Depression
     Dosage: 50 MG, THERAPY START DATE : NASK
     Route: 048
     Dates: end: 20220201
  2. TERALITHE [Suspect]
     Active Substance: LITHIUM CARBONATE
     Indication: Depression
     Dosage: 400 MG, THERAPY START DATE : NASK
     Route: 048
     Dates: end: 20220201
  3. OXAZEPAM [Suspect]
     Active Substance: OXAZEPAM
     Indication: Depression
     Dosage: 60 MG, THERAPY START DATE : NASK
     Route: 048
     Dates: end: 20220201
  4. AMLODIPINE [Concomitant]
     Active Substance: AMLODIPINE BESYLATE
  5. KARDEGIC [Concomitant]
     Active Substance: ASPIRIN DL-LYSINE
  6. MOVICOL [Concomitant]
     Active Substance: POLYETHYLENE GLYCOL 3350\POTASSIUM CHLORIDE\SODIUM BICARBONATE\SODIUM CHLORIDE
  7. MELATONIN [Concomitant]
     Active Substance: MELATONIN

REACTIONS (5)
  - Coma [Recovered/Resolved]
  - Benzodiazepine drug level increased [Recovering/Resolving]
  - Rhabdomyolysis [Recovering/Resolving]
  - Antipsychotic drug level increased [Recovered/Resolved]
  - Acute kidney injury [Recovered/Resolved]

NARRATIVE: CASE EVENT DATE: 20220121
